FAERS Safety Report 18727886 (Version 2)
Quarter: 2023Q2

REPORT INFORMATION
  Report Type: Report from Study
  Country: RU (occurrence: RU)
  Receive Date: 20210112
  Receipt Date: 20230617
  Transmission Date: 20230722
  Serious: Yes (Other)
  Sender: FDA-Public Use
  Company Number: RU-AUROBINDO-AUR-APL-2021-001088

PATIENT

DRUGS (4)
  1. MELPHALAN [Suspect]
     Active Substance: MELPHALAN
     Indication: Ewing^s sarcoma
     Dosage: 70 MILLIGRAM/SQ. METER, ONCE A DAY
     Route: 065
  2. TREOSULFAN [Suspect]
     Active Substance: TREOSULFAN
     Indication: Ewing^s sarcoma
     Dosage: 10000 MILLIGRAM/SQ. METER, ONCE A DAY, 40000 MG/M2/COURSE
     Route: 065
  3. AZACITIDINE [Suspect]
     Active Substance: AZACITIDINE
     Indication: Ewing^s sarcoma
     Dosage: 75 MILLIGRAM/SQ. METER, ONCE A DAY
     Route: 065
  4. GRANULOCYTE COLONY-STIMULATING FACTOR NOS [Suspect]
     Active Substance: GRANULOCYTE COLONY-STIMULATING FACTOR NOS
     Indication: Ewing^s sarcoma
     Dosage: UNK
     Route: 065

REACTIONS (8)
  - Febrile neutropenia [Recovered/Resolved]
  - Haemorrhage [Recovered/Resolved]
  - Hepatotoxicity [Recovered/Resolved]
  - Diarrhoea [Recovered/Resolved]
  - Stomatitis [Recovered/Resolved]
  - Dyspepsia [Recovered/Resolved]
  - Erythema [Recovered/Resolved]
  - Product use in unapproved indication [Unknown]
